FAERS Safety Report 13075979 (Version 1)
Quarter: 2016Q4

REPORT INFORMATION
  Report Type: Spontaneous
  Country: NZ (occurrence: NZ)
  Receive Date: 20161230
  Receipt Date: 20161230
  Transmission Date: 20170207
  Serious: Yes (Death)
  Sender: FDA-Public Use
  Company Number: NZ-TAKEDA-2016TUS023513

PATIENT
  Age: 80 Year
  Sex: Female

DRUGS (1)
  1. ADENURIC [Suspect]
     Active Substance: FEBUXOSTAT
     Indication: GOUT
     Dosage: 80 MG, UNK
     Route: 065
     Dates: start: 2014

REACTIONS (1)
  - Death [Fatal]
